FAERS Safety Report 22015224 (Version 1)
Quarter: 2023Q1

REPORT INFORMATION
  Report Type: Spontaneous
  Country: US (occurrence: None)
  Receive Date: 20230221
  Receipt Date: 20230221
  Transmission Date: 20230418
  Serious: No
  Sender: FDA-Public Use
  Company Number: 2023A038653

PATIENT
  Age: 66 Year
  Sex: Female
  Weight: 83.9 kg

DRUGS (1)
  1. BYDUREON BCISE [Suspect]
     Active Substance: EXENATIDE
     Indication: Diabetes mellitus
     Route: 058
     Dates: start: 2022

REACTIONS (6)
  - Product temperature excursion issue [Unknown]
  - Device leakage [Unknown]
  - Drug dose omission by device [Not Recovered/Not Resolved]
  - Glycosylated haemoglobin increased [Unknown]
  - Visual impairment [Not Recovered/Not Resolved]
  - Product preparation error [Unknown]

NARRATIVE: CASE EVENT DATE: 20220101
